FAERS Safety Report 9500995 (Version 2)
Quarter: 2013Q3

REPORT INFORMATION
  Report Type: Spontaneous
  Country: US (occurrence: US)
  Receive Date: 20130905
  Receipt Date: 20130909
  Transmission Date: 20140515
  Serious: Yes (Hospitalization)
  Sender: FDA-Public Use
  Company Number: US-BAXTER-2013BAX034461

PATIENT
  Sex: Male

DRUGS (1)
  1. DIANEAL LOW CALCIUM [Suspect]
     Indication: PERITONEAL DIALYSIS
     Route: 033
     Dates: start: 201307

REACTIONS (4)
  - Diabetic vascular disorder [Recovering/Resolving]
  - Renal failure [Recovering/Resolving]
  - Diabetic complication [Recovering/Resolving]
  - Diabetes mellitus [Recovering/Resolving]
